FAERS Safety Report 5112638-7 (Version None)
Quarter: 2006Q3

REPORT INFORMATION
  Report Type: 
  Country: None (occurrence: None)
  Receive Date: 20060918
  Receipt Date: 20060918
  Transmission Date: 20061208
  Serious: No
  Sender: FDA-Public Use
  Company Number: None

PATIENT
  Age: 61 Year
  Sex: Male

DRUGS (11)
  1. LEVAQUIN [Suspect]
     Dosage: SEE IMAGE
     Dates: start: 20050227, end: 20050318
  2. GLUCOVANCE [Concomitant]
  3. LIPITOR [Concomitant]
  4. ZOCOR [Concomitant]
  5. LISINOPRIL [Concomitant]
  6. PLAVIX [Concomitant]
  7. AVANDIA [Concomitant]
  8. CORAL CALCIUM [Concomitant]
  9. MULTIVITAMIN [Concomitant]
  10. OMEGA-3 [Concomitant]
  11. CLINDAMYCIN [Suspect]

REACTIONS (13)
  - CHOLESTASIS [None]
  - FOOT AMPUTATION [None]
  - GALLBLADDER DISORDER [None]
  - HEPATIC FAILURE [None]
  - HEPATIC FIBROSIS [None]
  - HEPATIC STEATOSIS [None]
  - HEPATIC TRAUMA [None]
  - HYPOTHERMIA [None]
  - LYMPHADENOPATHY [None]
  - MUSCLE ATROPHY [None]
  - POLYP [None]
  - UROSEPSIS [None]
  - WEIGHT DECREASED [None]
